FAERS Safety Report 5732892-8 (Version None)
Quarter: 2008Q2

REPORT INFORMATION
  Report Type: 
  Country: None (occurrence: None)
  Receive Date: 20080509
  Receipt Date: 20080214
  Transmission Date: 20081010
  Serious: No
  Sender: FDA-Public Use
  Company Number: A0709667A

PATIENT
  Age: 36 Year

DRUGS (5)
  1. COREG CR [Suspect]
     Indication: BLOOD PRESSURE
     Dosage: 20MG PER DAY
     Route: 048
     Dates: start: 20071001
  2. CRESTOR [Concomitant]
  3. VERAMYST [Concomitant]
  4. ALLEGRA [Concomitant]
  5. SINGULAIR [Concomitant]

REACTIONS (2)
  - DIZZINESS [None]
  - DRUG INEFFECTIVE [None]
